FAERS Safety Report 25578486 (Version 1)
Quarter: 2025Q3

REPORT INFORMATION
  Report Type: Spontaneous
  Country: EU (occurrence: EU)
  Receive Date: 20250718
  Receipt Date: 20250718
  Transmission Date: 20251020
  Serious: Yes (Death)
  Sender: ROCHE
  Company Number: None

PATIENT
  Age: 60 Year
  Sex: Female
  Weight: 48 kg

DRUGS (7)
  1. CELLCEPT [Suspect]
     Active Substance: MYCOPHENOLATE MOFETIL
     Indication: Prophylaxis against transplant rejection
     Route: 048
     Dates: start: 20211007
  2. ENVARSUS XR [Suspect]
     Active Substance: TACROLIMUS
     Indication: Prophylaxis against transplant rejection
     Route: 048
     Dates: start: 20211007
  3. ATORVASTATIN [Concomitant]
     Active Substance: ATORVASTATIN
  4. LERCANIDIPINE HYDROCHLORIDE [Concomitant]
     Active Substance: LERCANIDIPINE HYDROCHLORIDE
  5. AMITRIPTYLINE HYDROCHLORIDE [Concomitant]
     Active Substance: AMITRIPTYLINE HYDROCHLORIDE
  6. ACETAMINOPHEN [Concomitant]
     Active Substance: ACETAMINOPHEN
  7. LIDOCAINE [Concomitant]
     Active Substance: LIDOCAINE

REACTIONS (1)
  - Invasive ductal breast carcinoma [Fatal]

NARRATIVE: CASE EVENT DATE: 20231201
